FAERS Safety Report 7832346-9 (Version None)
Quarter: 2011Q4

REPORT INFORMATION
  Report Type: 
  Country: None (occurrence: None)
  Receive Date: 20111022
  Receipt Date: 20111012
  Transmission Date: 20120403
  Serious: Yes (Death, Other)
  Sender: FDA-Public Use
  Company Number: US-BAYER-2011-009853

PATIENT
  Age: 85 Year
  Sex: Female
  Weight: 54 kg

DRUGS (16)
  1. TIMOPTIC [Concomitant]
  2. TRASYLOL [Suspect]
     Indication: CORONARY ARTERY BYPASS
     Dosage: UNK
     Route: 042
     Dates: start: 19991001
  3. HYDROCHLOROTHIAZIDE [Concomitant]
  4. HEPARIN [Concomitant]
     Dosage: 17000 U, UNK
     Route: 042
     Dates: start: 20001016
  5. LASIX [Concomitant]
     Dosage: UNK
     Dates: start: 20001016
  6. INDERAL [Concomitant]
     Dosage: UNK
     Dates: start: 20001016
  7. PROTAMINE SULFATE [Concomitant]
     Dosage: UNK
     Dates: start: 20001016
  8. AMICAR [Concomitant]
  9. TENORMIN [Concomitant]
  10. ATIVAN [Concomitant]
  11. TRASYLOL [Suspect]
     Dosage: UNK
     Route: 042
     Dates: start: 20001016
  12. EPHEDRINE SUL CAP [Concomitant]
     Dosage: UNK
     Dates: start: 20001016
  13. IOPAMIDOL [Concomitant]
     Indication: CATHETERISATION CARDIAC
     Dosage: 117 CC
     Dates: start: 20001012
  14. KEFZOL [Concomitant]
     Dosage: 1 G, UNK
     Route: 042
     Dates: start: 20001016
  15. COUMADIN [Concomitant]
  16. SEVOFLURANE [Concomitant]

REACTIONS (12)
  - DEATH [None]
  - UNEVALUABLE EVENT [None]
  - PAIN [None]
  - INJURY [None]
  - RENAL FAILURE [None]
  - MULTI-ORGAN FAILURE [None]
  - EMOTIONAL DISTRESS [None]
  - STRESS [None]
  - ANXIETY [None]
  - FEAR [None]
  - RENAL IMPAIRMENT [None]
  - RENAL INJURY [None]
